FAERS Safety Report 19293707 (Version 1)
Quarter: 2021Q2

REPORT INFORMATION
  Report Type: Spontaneous
  Country: US (occurrence: US)
  Receive Date: 20210524
  Receipt Date: 20210524
  Transmission Date: 20210717
  Serious: Yes (Death)
  Sender: FDA-Public Use
  Company Number: None

PATIENT
  Age: 73 Year
  Sex: Male
  Weight: 79 kg

DRUGS (1)
  1. REMDESIVIR (REMDESIVIR 100MG/VIAL INJ) [Suspect]
     Active Substance: REMDESIVIR
     Indication: COVID-19 PNEUMONIA
     Route: 042
     Dates: start: 20200605, end: 20200614

REACTIONS (11)
  - Pneumoconiosis [None]
  - Respiratory rate increased [None]
  - Oxygen saturation decreased [None]
  - Anaemia [None]
  - Hypoalbuminaemia [None]
  - Condition aggravated [None]
  - Respiratory failure [None]
  - Hypoglycaemia [None]
  - Blood pressure increased [None]
  - Pulmonary oedema [None]
  - Pneumonia [None]

NARRATIVE: CASE EVENT DATE: 20200622
